FAERS Safety Report 4616060-9 (Version None)
Quarter: 2005Q1

REPORT INFORMATION
  Report Type: 
  Country: None (occurrence: None)
  Receive Date: 20050321
  Receipt Date: 20050311
  Transmission Date: 20050727
  Serious: Yes (Hospitalization)
  Sender: FDA-Public Use
  Company Number: STA-AE-05-MTX-004

PATIENT
  Age: 69 Year
  Sex: Male

DRUGS (5)
  1. METHOTREXATE [Suspect]
     Indication: RHEUMATOID ARTHRITIS
     Dosage: 4 MG - 1XW - ORAL
     Route: 048
     Dates: end: 20041228
  2. AURANOFIN [Suspect]
     Dosage: 6 MG
     Dates: end: 20041228
  3. PREDNISOLONE [Concomitant]
  4. INDOMETHACIN [Concomitant]
  5. PIROXICAM [Concomitant]

REACTIONS (3)
  - ANGINA PECTORIS [None]
  - LARGE INTESTINAL ULCER HAEMORRHAGE [None]
  - SHOCK [None]
